FAERS Safety Report 13405361 (Version 2)
Quarter: 2017Q2

REPORT INFORMATION
  Report Type: Spontaneous
  Country: US (occurrence: US)
  Receive Date: 20170405
  Receipt Date: 20170512
  Transmission Date: 20170830
  Serious: No
  Sender: FDA-Public Use
  Company Number: US-PFIZER INC-2017142221

PATIENT
  Age: 51 Year
  Sex: Male
  Weight: 93 kg

DRUGS (1)
  1. DEPO-TESTOSTERONE [Suspect]
     Active Substance: TESTOSTERONE CYPIONATE
     Indication: ORCHIDECTOMY
     Dosage: 300 MG, EVERY TWO WEEKS

REACTIONS (2)
  - Drug ineffective [Unknown]
  - Fatigue [Unknown]
